FAERS Safety Report 13122643 (Version 1)
Quarter: 2017Q1

REPORT INFORMATION
  Report Type: Spontaneous
  Country: IT (occurrence: IT)
  Receive Date: 20170117
  Receipt Date: 20170117
  Transmission Date: 20170428
  Serious: Yes (Other)
  Sender: FDA-Public Use
  Company Number: IT-INGENUS PHARMACEUTICALS NJ, LLC-ING201701-000007

PATIENT
  Sex: Female

DRUGS (2)
  1. LOW MOLECULAR WEIGHT HEPARIN [Suspect]
     Active Substance: UNSPECIFIED INGREDIENT
  2. CARISOPRODOL AND ASPIRIN [Suspect]
     Active Substance: ASPIRIN\CARISOPRODOL

REACTIONS (2)
  - Exposure during pregnancy [Unknown]
  - Ischaemic stroke [Unknown]
